FAERS Safety Report 5657169-0 (Version None)
Quarter: 2008Q1

REPORT INFORMATION
  Report Type: 
  Country: None (occurrence: None)
  Receive Date: 20080310
  Receipt Date: 20080226
  Transmission Date: 20080703
  Serious: Yes (Other)
  Sender: FDA-Public Use
  Company Number: DE-AMGEN-UK267739

PATIENT
  Sex: Female
  Weight: 81 kg

DRUGS (21)
  1. KEPIVANCE [Suspect]
     Indication: MUCOSAL INFLAMMATION
     Route: 042
     Dates: start: 20070711, end: 20070817
  2. RITUXIMAB [Concomitant]
     Route: 065
     Dates: start: 20070712
  3. VINDESINE [Concomitant]
     Route: 065
     Dates: start: 20070713
  4. METHOTREXATE [Concomitant]
     Route: 065
     Dates: start: 20070713
  5. VP-16 [Concomitant]
     Route: 065
     Dates: start: 20070716
  6. CYTARABINE [Concomitant]
     Route: 065
     Dates: start: 20070717
  7. DEXAMETHASONE TAB [Concomitant]
     Route: 065
     Dates: start: 20070713
  8. LEUCOVORIN CALCIUM [Concomitant]
     Route: 065
     Dates: start: 20070715
  9. SODIUM BICARBONATE [Concomitant]
     Route: 065
     Dates: start: 20070713
  10. DEXA-SINE [Concomitant]
     Route: 065
     Dates: start: 20070718
  11. NEUPOGEN [Concomitant]
     Route: 065
     Dates: start: 20070719
  12. ZOFRAN [Concomitant]
     Route: 065
     Dates: start: 20070713
  13. LASIX [Concomitant]
     Route: 065
     Dates: start: 20070713
  14. TAVEGIL [Concomitant]
     Route: 065
     Dates: start: 20070809
  15. TAGAMET [Concomitant]
     Route: 065
     Dates: start: 20070809
  16. ACETAMINOPHEN [Concomitant]
     Route: 065
     Dates: start: 20070809
  17. VINCRISTINE [Concomitant]
     Route: 065
     Dates: start: 20070810
  18. IFOSFAMIDE [Concomitant]
     Route: 065
     Dates: start: 20070810
  19. MESNA [Concomitant]
     Route: 065
     Dates: start: 20070810
  20. CYTARABINE [Concomitant]
     Route: 065
     Dates: start: 20070813
  21. ONDANSETRON [Concomitant]
     Route: 065
     Dates: start: 20070810

REACTIONS (2)
  - EPIDERMOLYSIS [None]
  - PETECHIAE [None]
